FAERS Safety Report 4264147-5 (Version None)
Quarter: 2004Q1

REPORT INFORMATION
  Report Type: 
  Country: None (occurrence: None)
  Receive Date: 20040102
  Receipt Date: 20031121
  Transmission Date: 20041129
  Serious: Yes (Other)
  Sender: FDA-Public Use
  Company Number: GBS031214197

PATIENT
  Age: 58 Year
  Sex: Male

DRUGS (5)
  1. PERGOLIDE MESYLATE [Suspect]
     Indication: PARKINSONISM
     Dosage: 1 MG/1 DAY
     Dates: start: 20000712, end: 20030925
  2. SINEMET [Concomitant]
  3. SINEMET CR [Concomitant]
  4. ENTACAPONE [Concomitant]
  5. CITALOPRAM [Concomitant]

REACTIONS (1)
  - OBSESSIVE-COMPULSIVE DISORDER [None]
